FAERS Safety Report 6195292-5 (Version None)
Quarter: 2009Q2

REPORT INFORMATION
  Report Type: 
  Country: None (occurrence: None)
  Receive Date: 20090515
  Receipt Date: 20090506
  Transmission Date: 20091009
  Serious: Yes (Other)
  Sender: FDA-Public Use
  Company Number: 2009US001507

PATIENT
  Age: 12 Year
  Sex: Male

DRUGS (13)
  1. AMBISOME [Suspect]
     Indication: ASPERGILLOSIS
  2. ITRACONAZOLE [Concomitant]
  3. VANCOMYCIN [Concomitant]
  4. CEFTAZIDIME [Concomitant]
  5. TERAZOSIN HCL [Concomitant]
  6. NIFEDIPINE [Concomitant]
  7. FLUOXETINE [Concomitant]
  8. METOCLOPRAMIDE [Concomitant]
  9. ONDANSETRON HCL [Concomitant]
  10. OMEPRAZOLE [Concomitant]
  11. PREDNISONE TAB [Concomitant]
  12. MAGNESIUM (MAGNESIUM) [Concomitant]
  13. PHOSPHORUS (PHOSPHORUS) [Concomitant]

REACTIONS (1)
  - NEPHROGENIC DIABETES INSIPIDUS [None]
